FAERS Safety Report 5744916-2 (Version None)
Quarter: 2008Q2

REPORT INFORMATION
  Report Type: 
  Country: None (occurrence: None)
  Receive Date: 20080516
  Receipt Date: 20080501
  Transmission Date: 20081010
  Serious: Yes (Disabling)
  Sender: FDA-Public Use
  Company Number: 2008S1007681

PATIENT
  Age: 72 Year
  Sex: Male

DRUGS (6)
  1. SIMVASTATIN [Suspect]
     Indication: ATRIAL FIBRILLATION
     Dosage: 40 MG; DAILY
     Dates: start: 20080205, end: 20080307
  2. WARFARIN SODIUM [Suspect]
     Indication: ATRIAL FIBRILLATION
     Dates: start: 20080325
  3. ASPIRIN [Concomitant]
  4. LERCANIDIPINE [Concomitant]
  5. DILTIAZEM [Suspect]
     Indication: DRUG USE FOR UNKNOWN INDICATION
     Dates: start: 20080220, end: 20080307
  6. LOSARTAN POTASSIUM [Suspect]
     Indication: CEREBROVASCULAR DISORDER
     Dosage: 50 MG; DAILY
     Dates: start: 20080205, end: 20080307

REACTIONS (2)
  - EYE INFLAMMATION [None]
  - RASH GENERALISED [None]
